FAERS Safety Report 6471150 (Version 2)
Quarter: 2012Q4

REPORT INFORMATION
  Report Type: 
  Country: US (occurrence: US)
  Receive Date: 20071119
  Receipt Date: 20121207
  Transmission Date: 20130627
  Serious: Yes (Other)
  Sender: FDA-Public Use
  Company Number: US-JNJFOC-20071105263

PATIENT
  Age: 18 Year
  Sex: Female
  Weight: 61.24 kg

DRUGS (3)
  1. MOTRIN IB [Suspect]
  2. MOTRIN IB [Suspect]
     Indication: PAIN
     Dates: start: 20071112, end: 20071112
  3. PRENATAL VITAMINS [Concomitant]
     Indication: ROUTINE HEALTH MAINTENANCE
     Dates: start: 20070103

REACTIONS (3)
  - Dyspnoea [Not Recovered/Not Resolved]
  - Anaemia [Unknown]
  - Expired drug administered [Unknown]
